FAERS Safety Report 8845568 (Version 2)
Quarter: 2013Q2

REPORT INFORMATION
  Report Type: Spontaneous
  Country: US (occurrence: US)
  Receive Date: 20121017
  Receipt Date: 20130611
  Transmission Date: 20140414
  Serious: Yes (Life-Threatening)
  Sender: FDA-Public Use
  Company Number: US-BAYER-2012-107002

PATIENT
  Age: 59 Year
  Sex: Male
  Weight: 90 kg

DRUGS (8)
  1. BAYER ASPIRIN QUICK RELEASE CRYSTALS [Suspect]
     Dosage: 1 DF, PRN
     Route: 048
     Dates: start: 2010
  2. BAYER ASPIRIN REGIMEN ADULT LOW STRENGTH [Suspect]
     Indication: ISCHAEMIC HEART DISEASE PROPHYLAXIS
     Dosage: 1 DF, QD
     Route: 048
  3. BAYER ASPIRIN REGIMEN ADULT LOW STRENGTH [Suspect]
     Indication: COAGULOPATHY
  4. BAYER GENUINE ASPIRIN ORIGINAL STRENGTH [Concomitant]
     Indication: ISCHAEMIC HEART DISEASE PROPHYLAXIS
     Dosage: 1 UNK, UNK
     Route: 048
     Dates: start: 1987
  5. PRASUGREL [Concomitant]
     Indication: ANTICOAGULANT THERAPY
     Dosage: 10 MG, OM
     Dates: start: 201206
  6. COREG [Concomitant]
  7. CRESTOR [Concomitant]
     Indication: BLOOD CHOLESTEROL ABNORMAL
     Dosage: 20 MG, EVERY NIGHT
     Dates: start: 201206
  8. BYSTOLIC [Concomitant]
     Indication: HYPERTENSION
     Dosage: 2.5 MG, OM
     Dates: start: 201206

REACTIONS (3)
  - Cardio-respiratory arrest [None]
  - Off label use [None]
  - Cardioversion [None]
